FAERS Safety Report 16963402 (Version 1)
Quarter: 2019Q4

REPORT INFORMATION
  Report Type: Spontaneous
  Country: CZ (occurrence: CZ)
  Receive Date: 20191025
  Receipt Date: 20191025
  Transmission Date: 20200122
  Serious: No
  Sender: FDA-Public Use
  Company Number: CZ-B.BRAUN MEDICAL INC.-2076054

PATIENT
  Age: 73 Year
  Sex: Female
  Weight: 73 kg

DRUGS (1)
  1. POTASSIUM CHLORIDE IN 5% DEXTROSE INJECTIONS USP 0264-7625-00 (NDA 019 [Suspect]
     Active Substance: DEXTROSE\POTASSIUM CHLORIDE
     Indication: PREOPERATIVE CARE
     Route: 042
     Dates: start: 20191001, end: 20191001

REACTIONS (1)
  - Infusion site pain [None]

NARRATIVE: CASE EVENT DATE: 20191001
